FAERS Safety Report 10489983 (Version 2)
Quarter: 2014Q4

REPORT INFORMATION
  Report Type: Spontaneous
  Country: US (occurrence: US)
  Receive Date: 20141002
  Receipt Date: 20141020
  Transmission Date: 20150528
  Serious: No
  Sender: FDA-Public Use
  Company Number: US-PFIZER INC-2014267418

PATIENT
  Age: 46 Year
  Sex: Female

DRUGS (1)
  1. SUTENT [Suspect]
     Active Substance: SUNITINIB MALATE
     Indication: THYROID CANCER METASTATIC
     Dosage: UNK

REACTIONS (4)
  - Alopecia [Unknown]
  - Eye swelling [Unknown]
  - Swelling face [Unknown]
  - Product use issue [Unknown]
